FAERS Safety Report 16655664 (Version 5)
Quarter: 2024Q2

REPORT INFORMATION
  Report Type: Spontaneous
  Country: CA (occurrence: CA)
  Receive Date: 20190801
  Receipt Date: 20240408
  Transmission Date: 20240716
  Serious: Yes (Hospitalization, Other)
  Sender: FDA-Public Use
  Company Number: CA-AUROBINDO-AUR-APL-2019-043453

PATIENT
  Age: 21 Year
  Sex: Male

DRUGS (25)
  1. LACOSAMIDE [Suspect]
     Active Substance: LACOSAMIDE
     Indication: Seizure
     Dosage: UNK
     Route: 065
  2. LACOSAMIDE [Suspect]
     Active Substance: LACOSAMIDE
     Indication: Status epilepticus
  3. LEVETIRACETAM [Suspect]
     Active Substance: LEVETIRACETAM
     Indication: Seizure
     Dosage: UNK
     Route: 065
  4. LEVETIRACETAM [Suspect]
     Active Substance: LEVETIRACETAM
     Indication: Status epilepticus
  5. METHYLPREDNISOLONE [Suspect]
     Active Substance: METHYLPREDNISOLONE
     Indication: Status epilepticus
     Dosage: UNK
     Route: 042
  6. FORANE [Suspect]
     Active Substance: ISOFLURANE
     Indication: Seizure
     Dosage: UNK
  7. FORANE [Suspect]
     Active Substance: ISOFLURANE
     Indication: Anaesthesia
     Dosage: UNK
     Route: 051
  8. FORANE [Suspect]
     Active Substance: ISOFLURANE
     Indication: Status epilepticus
  9. FORANE [Suspect]
     Active Substance: ISOFLURANE
     Indication: Anaesthesia procedure
  10. MIDAZOLAM [Suspect]
     Active Substance: MIDAZOLAM
     Indication: Seizure
     Dosage: UNK
     Route: 030
  11. MIDAZOLAM [Suspect]
     Active Substance: MIDAZOLAM
     Indication: Status epilepticus
     Dosage: UNK
     Route: 065
  12. PHENOBARBITAL [Suspect]
     Active Substance: PHENOBARBITAL
     Indication: Seizure
     Dosage: 100 MILLIGRAM, TWO TIMES A DAY
     Route: 042
  13. PHENOBARBITAL [Suspect]
     Active Substance: PHENOBARBITAL
     Indication: Status epilepticus
  14. PHENYTOIN [Suspect]
     Active Substance: PHENYTOIN
     Indication: Seizure
     Dosage: UNK
     Route: 051
  15. PHENYTOIN [Suspect]
     Active Substance: PHENYTOIN
     Indication: Status epilepticus
  16. PROPOFOL [Suspect]
     Active Substance: PROPOFOL
     Indication: Seizure
     Dosage: UNK
     Route: 051
  17. PROPOFOL [Suspect]
     Active Substance: PROPOFOL
     Indication: Status epilepticus
  18. PROPOFOL [Suspect]
     Active Substance: PROPOFOL
     Indication: Product used for unknown indication
     Dosage: UNK
     Route: 065
  19. VALPROIC ACID [Suspect]
     Active Substance: VALPROIC ACID
     Indication: Seizure
     Dosage: UNK
     Route: 065
  20. VALPROIC ACID [Suspect]
     Active Substance: VALPROIC ACID
     Indication: Status epilepticus
  21. VALPROIC ACID [Suspect]
     Active Substance: VALPROIC ACID
     Indication: Seizure
     Dosage: UNK
     Route: 065
  22. VIMPAT [Suspect]
     Active Substance: LACOSAMIDE
     Indication: Status epilepticus
     Dosage: UNK
     Route: 065
  23. KEPPRA [Suspect]
     Active Substance: LEVETIRACETAM
     Indication: Seizure
     Dosage: UNK
     Route: 065
  24. IMMUNE GLOBULIN NOS [Concomitant]
     Active Substance: IMMUNE GLOBULIN NOS
     Indication: Product used for unknown indication
     Dosage: UNK
     Route: 065
  25. HUMAN IMMUNOGLOBULIN G [Concomitant]
     Active Substance: HUMAN IMMUNOGLOBULIN G
     Indication: Product used for unknown indication
     Dosage: UNK
     Route: 065

REACTIONS (19)
  - Brain oedema [Unknown]
  - Clostridium difficile infection [Unknown]
  - Clostridium difficile colitis [Unknown]
  - Hypotension [Unknown]
  - Intestinal ischaemia [Unknown]
  - Leukocytosis [Unknown]
  - Diabetes insipidus [Unknown]
  - Superinfection [Unknown]
  - Systemic inflammatory response syndrome [Unknown]
  - Off label use [Unknown]
  - Ileus [Unknown]
  - Abdominal distension [Unknown]
  - Blood lactic acid increased [Unknown]
  - Heart rate increased [Unknown]
  - Pyrexia [Unknown]
  - Mucosal ulceration [Unknown]
  - Necrosis ischaemic [Unknown]
  - Drug ineffective [Unknown]
  - Product use in unapproved indication [Unknown]
